FAERS Safety Report 8427071-X (Version None)
Quarter: 2012Q2

REPORT INFORMATION
  Report Type: 
  Country: None (occurrence: None)
  Receive Date: 20120611
  Receipt Date: 20120607
  Transmission Date: 20120825
  Serious: Yes (Hospitalization)
  Sender: FDA-Public Use
  Company Number: IN-ROCHE-784642

PATIENT
  Sex: Female
  Weight: 66 kg

DRUGS (13)
  1. XELODA [Suspect]
     Dosage: CYCLICAL,FILM-COATED TABLET
     Route: 048
  2. DICLOFENAC DIETHYLAMINE [Concomitant]
  3. GENERIC COMPONENT(S) NOT KNOWN [Concomitant]
  4. ZOMETA [Concomitant]
     Dates: start: 20110220
  5. ALCOHOL [Concomitant]
  6. LINSEED [Concomitant]
     Dosage: DRUG: LINSEED OIL
  7. MENTHOL [Concomitant]
  8. XELODA [Suspect]
     Indication: BREAST CANCER
     Dosage: CYCLICAL CAPECITABINE (CAPECITABINE) FILM-COATED TABLET
     Route: 048
     Dates: start: 20110427, end: 20110531
  9. METHYL SALICYLATE [Concomitant]
  10. VITAMINS AND MINERALS [Concomitant]
  11. TRAMADOL HCL [Concomitant]
  12. ACETAMINOPHEN [Concomitant]
  13. SHELCAL [Concomitant]
     Dates: start: 20110608, end: 20110709

REACTIONS (3)
  - HYPOALBUMINAEMIA [None]
  - DIARRHOEA [None]
  - ANAEMIA [None]
